FAERS Safety Report 9878110 (Version 1)
Quarter: 2014Q1

REPORT INFORMATION
  Report Type: Spontaneous
  Country: US (occurrence: PR)
  Receive Date: 20140206
  Receipt Date: 20140206
  Transmission Date: 20141002
  Serious: Yes (Hospitalization)
  Sender: FDA-Public Use
  Company Number: US-BAYER-2014-016269

PATIENT
  Age: 41 Year
  Sex: Female

DRUGS (1)
  1. CIPRO [Suspect]
     Dosage: UNK
     Route: 042
     Dates: start: 201312

REACTIONS (4)
  - Infusion site pain [None]
  - Infusion site erythema [None]
  - Infusion site swelling [None]
  - Infusion site induration [None]
